FAERS Safety Report 22037607 (Version 1)
Quarter: 2023Q1

REPORT INFORMATION
  Report Type: Report from Study
  Country: US (occurrence: US)
  Receive Date: 20230227
  Receipt Date: 20230227
  Transmission Date: 20230417
  Serious: No
  Sender: FDA-Public Use
  Company Number: US-ACADIA PHARMACEUTICALS INC.-ACA-2023-PIM-000452

PATIENT
  Age: 78 Year
  Sex: Female

DRUGS (13)
  1. NUPLAZID [Suspect]
     Active Substance: PIMAVANSERIN TARTRATE
     Indication: Parkinson^s disease
     Dosage: 34 MILLIGRAM, QD
     Route: 048
     Dates: start: 20220730, end: 20230110
  2. BACLOFEN [Concomitant]
     Active Substance: BACLOFEN
  3. IBUPROFEN [Concomitant]
     Active Substance: IBUPROFEN
  4. TRAZODONE [Concomitant]
     Active Substance: TRAZODONE HYDROCHLORIDE
  5. RASAGILINE [Concomitant]
     Active Substance: RASAGILINE
  6. JANUMET [Concomitant]
     Active Substance: METFORMIN HYDROCHLORIDE\SITAGLIPTIN PHOSPHATE
  7. METRONIDAZOLE [Concomitant]
     Active Substance: METRONIDAZOLE
  8. ROPINIROLE [Concomitant]
     Active Substance: ROPINIROLE
  9. OMEPRAZOLE [Concomitant]
     Active Substance: OMEPRAZOLE
  10. TRAMADOL [Concomitant]
     Active Substance: TRAMADOL
  11. TOPROL XL [Concomitant]
     Active Substance: METOPROLOL SUCCINATE
  12. SYNTHROID [Concomitant]
     Active Substance: LEVOTHYROXINE SODIUM
  13. ATORVASTATIN [Concomitant]
     Active Substance: ATORVASTATIN

REACTIONS (1)
  - Hallucination [Recovered/Resolved]

NARRATIVE: CASE EVENT DATE: 20220901
